FAERS Safety Report 18125277 (Version 1)
Quarter: 2020Q3

REPORT INFORMATION
  Report Type: Report from Study
  Country: US (occurrence: US)
  Receive Date: 20200807
  Receipt Date: 20200807
  Transmission Date: 20201103
  Serious: Yes (Hospitalization, Other)
  Sender: FDA-Public Use
  Company Number: US-BRISTOL-MYERS SQUIBB COMPANY-BMS-2020-062835

PATIENT
  Age: 74 Year
  Sex: Male
  Weight: 86 kg

DRUGS (4)
  1. PROSTVAC [Suspect]
     Active Substance: RILIMOGENE GALVACIREPVEC
     Indication: PROSTATE CANCER
     Route: 065
  2. NEOANTIGEN VACCINE [Suspect]
     Active Substance: INVESTIGATIONAL PRODUCT
     Indication: PROSTATE CANCER
     Dosage: UNK
     Route: 065
     Dates: end: 20200520
  3. NIVOLUMAB [Suspect]
     Active Substance: NIVOLUMAB
     Indication: PROSTATE CANCER
     Dosage: UNK
     Route: 065
     Dates: end: 20200520
  4. IPILIMUMAB [Suspect]
     Active Substance: IPILIMUMAB
     Indication: PROSTATE CANCER
     Route: 065

REACTIONS (6)
  - Hyponatraemia [Unknown]
  - Respiratory failure [Unknown]
  - Nausea [Unknown]
  - COVID-19 [Unknown]
  - Dehydration [Unknown]
  - Diarrhoea [Unknown]

NARRATIVE: CASE EVENT DATE: 20200730
